FAERS Safety Report 8913494 (Version 3)
Quarter: 2013Q2

REPORT INFORMATION
  Report Type: Spontaneous
  Country: US (occurrence: US)
  Receive Date: 20121116
  Receipt Date: 20130508
  Transmission Date: 20140414
  Serious: No
  Sender: FDA-Public Use
  Company Number: US-BIOGENIDEC-2012BI051771

PATIENT
  Age: 54 Year
  Sex: Female

DRUGS (1)
  1. TYSABRI [Suspect]
     Indication: MULTIPLE SCLEROSIS
     Route: 042
     Dates: start: 20110728

REACTIONS (19)
  - Musculoskeletal stiffness [Recovered/Resolved]
  - Mobility decreased [Recovered/Resolved]
  - Hyperhidrosis [Recovered/Resolved]
  - Pain in extremity [Not Recovered/Not Resolved]
  - Toothache [Not Recovered/Not Resolved]
  - Stress [Not Recovered/Not Resolved]
  - Gait disturbance [Not Recovered/Not Resolved]
  - Incontinence [Not Recovered/Not Resolved]
  - Intestinal polyp [Recovered/Resolved]
  - Diarrhoea [Recovered/Resolved]
  - Tooth extraction [Not Recovered/Not Resolved]
  - Hearing impaired [Not Recovered/Not Resolved]
  - Poor dental condition [Unknown]
  - Pain [Unknown]
  - Loose tooth [Unknown]
  - Faecal incontinence [Unknown]
  - Confusional state [Unknown]
  - Tooth infection [Not Recovered/Not Resolved]
  - Dental caries [Unknown]
